FAERS Safety Report 23833304 (Version 1)
Quarter: 2024Q2

REPORT INFORMATION
  Report Type: Spontaneous
  Country: US (occurrence: US)
  Receive Date: 20240508
  Receipt Date: 20240508
  Transmission Date: 20240716
  Serious: No
  Sender: FDA-Public Use
  Company Number: US-BAUSCHBL-2024BNL026692

PATIENT

DRUGS (1)
  1. XIIDRA [Suspect]
     Active Substance: LIFITEGRAST
     Indication: Dry eye
     Route: 065

REACTIONS (7)
  - Sinus pain [Not Recovered/Not Resolved]
  - Dry eye [Unknown]
  - Upper-airway cough syndrome [Not Recovered/Not Resolved]
  - Vision blurred [Unknown]
  - Headache [Not Recovered/Not Resolved]
  - Sinusitis [Not Recovered/Not Resolved]
  - Recalled product administered [Unknown]
